FAERS Safety Report 11214601 (Version 4)
Quarter: 2016Q1

REPORT INFORMATION
  Report Type: Report from Study
  Country: CA (occurrence: CA)
  Receive Date: 20150624
  Receipt Date: 20160311
  Transmission Date: 20160525
  Serious: Yes (Other)
  Sender: FDA-Public Use
  Company Number: PHHY2014CA011663

PATIENT
  Age: 50 Year
  Sex: Female

DRUGS (2)
  1. SANDOSTATIN LAR DEPOT [Suspect]
     Active Substance: OCTREOTIDE ACETATE
     Indication: NEUROENDOCRINE TUMOUR
     Dosage: 30 MG, QMO (EVERY 4 WEEKS)
     Route: 030
     Dates: start: 20130926
  2. SANDOSTATIN [Suspect]
     Active Substance: OCTREOTIDE ACETATE
     Indication: NEUROENDOCRINE TUMOUR
     Dosage: 50 UG, ONCE/SINGLE
     Route: 058
     Dates: start: 20130919, end: 20130919

REACTIONS (17)
  - Blood pressure increased [Unknown]
  - Large intestine polyp [Unknown]
  - Rib synostosis [Unknown]
  - Abdominal pain [Recovered/Resolved]
  - Blood pressure systolic increased [Unknown]
  - Pain [Unknown]
  - Abdominal pain lower [Recovered/Resolved]
  - Abdominal pain upper [Unknown]
  - Spinal compression fracture [Unknown]
  - Malignant neoplasm progression [Not Recovered/Not Resolved]
  - Musculoskeletal chest pain [Unknown]
  - Tumour pain [Unknown]
  - Abdominal pain upper [Recovered/Resolved]
  - Malaise [Unknown]
  - Feeling abnormal [Unknown]
  - Back pain [Unknown]
  - Spinal cord neoplasm [Unknown]

NARRATIVE: CASE EVENT DATE: 201408
